FAERS Safety Report 23794970 (Version 5)
Quarter: 2024Q2

REPORT INFORMATION
  Report Type: Report from Study
  Country: CA (occurrence: CA)
  Receive Date: 20240429
  Receipt Date: 20240529
  Transmission Date: 20240716
  Serious: Yes (Hospitalization, Other)
  Sender: FDA-Public Use
  Company Number: CA-HLS-202401067

PATIENT
  Sex: Male

DRUGS (19)
  1. CLOZARIL [Suspect]
     Active Substance: CLOZAPINE
     Indication: Bipolar I disorder
     Dosage: 175 MG DAILY.
     Route: 048
     Dates: start: 20240401, end: 20240423
  2. ATIVAN [Concomitant]
     Active Substance: LORAZEPAM
     Indication: Product used for unknown indication
     Dosage: 1 MG TWICE DAILY AS NEEDED.
     Route: 065
  3. ZYPREXA [Concomitant]
     Active Substance: OLANZAPINE
     Indication: Bipolar I disorder
     Dosage: 10 MG NIGHTLY, PLUS 2.5 MG 4 TIMES DAILY AS NEEDED.
     Route: 065
  4. LITHIUM [Concomitant]
     Active Substance: LITHIUM
     Indication: Product used for unknown indication
     Dosage: 1200 MG NIGHTLY
     Route: 065
  5. LITHIUM [Concomitant]
     Active Substance: LITHIUM
     Indication: Product used for unknown indication
     Dosage: LITHIUM 1350 MG DAILY.
     Route: 065
  6. IMOVANE [Concomitant]
     Active Substance: ZOPICLONE
     Indication: Product used for unknown indication
     Dosage: AS NEEDED.
     Route: 065
  7. SEROQUEL [Concomitant]
     Active Substance: QUETIAPINE FUMARATE
     Indication: Product used for unknown indication
     Dosage: 25 MG DAILY, AS NEEDED.
     Route: 065
  8. SEROQUEL [Concomitant]
     Active Substance: QUETIAPINE FUMARATE
     Indication: Product used for unknown indication
     Dosage: 25 MG NIGHTLY AS NEEDED.
     Route: 065
  9. INDERAL [Concomitant]
     Active Substance: PROPRANOLOL HYDROCHLORIDE
     Indication: Product used for unknown indication
     Dosage: 10 MG 3 TIMES DAILY, AS NEEDED.
     Route: 065
  10. LATUDA [Concomitant]
     Active Substance: LURASIDONE HYDROCHLORIDE
     Indication: Product used for unknown indication
     Dosage: 40 MG DAILY.
     Route: 065
  11. MODAFINIL [Concomitant]
     Active Substance: MODAFINIL
     Indication: Product used for unknown indication
     Dosage: DOSE INCREASED
     Route: 065
  12. MODAFINIL [Concomitant]
     Active Substance: MODAFINIL
     Indication: Product used for unknown indication
     Dosage: DAILY AT BEDTIME
     Route: 065
  13. LITHIUM [Concomitant]
     Active Substance: LITHIUM
     Indication: Product used for unknown indication
     Dosage: DAILY AT BEDTIME
     Route: 065
  14. OLANZAPINE [Concomitant]
     Active Substance: OLANZAPINE
     Indication: Product used for unknown indication
     Dosage: 5-25 MG DAILY AT BEDTIME
     Route: 065
  15. QUETIAPINE [Concomitant]
     Active Substance: QUETIAPINE
     Indication: Product used for unknown indication
     Dosage: DAILY AT BEDTIME
     Route: 065
  16. LAMOTRIGINE [Concomitant]
     Active Substance: LAMOTRIGINE
     Indication: Product used for unknown indication
     Route: 065
  17. ARIPIPRAZOLE [Concomitant]
     Active Substance: ARIPIPRAZOLE
     Indication: Product used for unknown indication
     Route: 065
  18. LURASIDONE [Concomitant]
     Active Substance: LURASIDONE
     Indication: Product used for unknown indication
     Dosage: UPTO 140 MG WITH FOOD
     Route: 065
  19. CARIPRAZINE [Concomitant]
     Active Substance: CARIPRAZINE
     Indication: Product used for unknown indication
     Dosage: UPTO 6 MG/DAY
     Route: 065

REACTIONS (8)
  - Ejection fraction decreased [Unknown]
  - Insomnia [Unknown]
  - Eosinophil count increased [Unknown]
  - Off label use [Unknown]
  - Cardiomyopathy [Unknown]
  - Myocarditis [Unknown]
  - Anxiety [Unknown]
  - Troponin increased [Not Recovered/Not Resolved]
